FAERS Safety Report 21444641 (Version 1)
Quarter: 2022Q4

REPORT INFORMATION
  Report Type: Spontaneous
  Country: US (occurrence: None)
  Receive Date: 20221010
  Receipt Date: 20221010
  Transmission Date: 20230113
  Serious: No
  Sender: FDA-Public Use
  Company Number: None

PATIENT
  Sex: Female

DRUGS (1)
  1. IRESSA [Suspect]
     Active Substance: GEFITINIB
     Indication: Lung neoplasm malignant
     Dosage: 250MG DAILY BY MOUTH?
     Route: 048
     Dates: start: 202209

REACTIONS (3)
  - Rash [None]
  - Muscle spasms [None]
  - Muscle spasms [None]
